FAERS Safety Report 20824069 (Version 1)
Quarter: 2022Q2

REPORT INFORMATION
  Report Type: Spontaneous
  Country: US (occurrence: US)
  Receive Date: 20220513
  Receipt Date: 20220513
  Transmission Date: 20220721
  Serious: Yes (Other)
  Sender: FDA-Public Use
  Company Number: US-CELLTRION INC.-2022US006210

PATIENT

DRUGS (2)
  1. TRUXIMA [Suspect]
     Active Substance: RITUXIMAB-ABBS
     Indication: Neoplasm
     Dosage: 675 MG, EVERY 2 WEEKS
     Dates: start: 20220427
  2. TRUXIMA [Suspect]
     Active Substance: RITUXIMAB-ABBS
     Indication: Anaemia
     Dosage: 675 MG, EVERY 2 WEEKS
     Dates: start: 20220504

REACTIONS (3)
  - Neoplasm [Unknown]
  - Anaemia [Unknown]
  - Off label use [Unknown]
